FAERS Safety Report 7905822-8 (Version None)
Quarter: 2011Q4

REPORT INFORMATION
  Report Type: 
  Country: None (occurrence: None)
  Receive Date: 20111108
  Receipt Date: 20111020
  Transmission Date: 20120403
  Serious: Yes (Other)
  Sender: FDA-Public Use
  Company Number: GER/GER/11/0017711

PATIENT
  Age: 43 Year
  Sex: Female
  Weight: 50 kg

DRUGS (3)
  1. TETRAZEPAM 50 (TETRAZEPAM) [Suspect]
     Indication: PRODUCT USED FOR UNKNOWN INDICATION
     Dosage: 15 DOSAGE FORMS, 1 IN 1 TOTAL, ORAL
     Route: 048
     Dates: start: 20110304
  2. DICLOFENAC RETARD 75 (DICLOFENAC) [Suspect]
     Indication: PRODUCT USED FOR UNKNOWN INDICATION
     Dosage: 20 DOSAGE FORMS, 1 IN 1 TOTAL, ORAL
     Route: 048
     Dates: start: 20110304
  3. IBUPROFEN [Suspect]
     Indication: PRODUCT USED FOR UNKNOWN INDICATION
     Dosage: 20 DOSAGE FORMS, 1 IN 1 TOTAL, ORAL
     Route: 048
     Dates: start: 20110304

REACTIONS (3)
  - SUICIDE ATTEMPT [None]
  - SOMNOLENCE [None]
  - MULTIPLE DRUG OVERDOSE INTENTIONAL [None]
